FAERS Safety Report 22098366 (Version 1)
Quarter: 2023Q1

REPORT INFORMATION
  Report Type: Spontaneous
  Country: JP (occurrence: JP)
  Receive Date: 20230315
  Receipt Date: 20230315
  Transmission Date: 20230417
  Serious: Yes (Life-Threatening, Hospitalization, Other)
  Sender: FDA-Public Use
  Company Number: JP-BAYER-2022A031193

PATIENT
  Age: 55 Year
  Sex: Male
  Weight: 73 kg

DRUGS (8)
  1. RIVAROXABAN [Interacting]
     Active Substance: RIVAROXABAN
     Indication: Atrial fibrillation
     Dosage: DAILY DOSE 10 MG
     Route: 048
     Dates: start: 20190312, end: 20201109
  2. RIVAROXABAN [Interacting]
     Active Substance: RIVAROXABAN
     Dosage: DAILY DOSE 10 MG
     Route: 048
     Dates: start: 20201118
  3. ASPIRIN [Interacting]
     Active Substance: ASPIRIN
     Indication: Anticoagulant therapy
     Dosage: DAILY DOSE 100 MG
     Route: 048
     Dates: start: 20190312, end: 20200318
  4. CLOPIDOGREL [Interacting]
     Active Substance: CLOPIDOGREL BISULFATE
     Indication: Anticoagulant therapy
     Dosage: DAILY DOSE 75 MG
     Route: 048
     Dates: start: 20190312, end: 20201109
  5. ENALAPRIL MALEATE [Concomitant]
     Active Substance: ENALAPRIL MALEATE
     Dosage: DAILY DOSE 5 MG
     Route: 048
     Dates: start: 20190312
  6. ATORVASTATIN OD [Concomitant]
     Dosage: DAILY DOSE 10 MG
     Route: 048
     Dates: start: 20190312
  7. ZETIA [Concomitant]
     Active Substance: EZETIMIBE
     Dosage: DAILY DOSE 10 MG
     Route: 048
     Dates: start: 20190312
  8. LANSOPRAZOLE [Concomitant]
     Active Substance: LANSOPRAZOLE
     Dosage: DAILY DOSE 15 MG
     Route: 048
     Dates: start: 20190312

REACTIONS (9)
  - Intraventricular haemorrhage [Recovered/Resolved with Sequelae]
  - Labelled drug-drug interaction medication error [Unknown]
  - Drug interaction [Unknown]
  - Altered state of consciousness [Unknown]
  - Hydrocephalus [Unknown]
  - Amnesia [Unknown]
  - Memory impairment [Unknown]
  - Headache [Unknown]
  - Speech disorder [Unknown]

NARRATIVE: CASE EVENT DATE: 20201109
